FAERS Safety Report 9293638 (Version 1)
Quarter: 2013Q2

REPORT INFORMATION
  Report Type: Spontaneous
  Country: DE (occurrence: DE)
  Receive Date: 20130516
  Receipt Date: 20130516
  Transmission Date: 20140414
  Serious: Yes (Congenital Anomaly)
  Sender: FDA-Public Use
  Company Number: DE-US-EMD SERONO, INC.-7210047

PATIENT
  Sex: 0

DRUGS (1)
  1. REBIF [Suspect]
     Indication: MULTIPLE SCLEROSIS
     Dosage: PRODUCT TAKEN BY MOTHER
     Route: 064

REACTIONS (1)
  - Trisomy 21 [Unknown]
